FAERS Safety Report 21650331 (Version 1)
Quarter: 2022Q4

REPORT INFORMATION
  Report Type: Spontaneous
  Country: IT (occurrence: IT)
  Receive Date: 20221128
  Receipt Date: 20221128
  Transmission Date: 20230113
  Serious: Yes (Other)
  Sender: FDA-Public Use
  Company Number: IT-LOREAL USA PRODUCTS, INC.-2022LOR00109

PATIENT
  Age: 75 Year
  Sex: Female

DRUGS (3)
  1. OCTOCRYLENE [Suspect]
     Active Substance: OCTOCRYLENE
     Indication: Prophylaxis
     Route: 061
  2. UNSPECIFIED INGREDIENT [Concomitant]
     Active Substance: UNSPECIFIED INGREDIENT
     Indication: Hypertension
     Route: 065
  3. VITAMIN D [Concomitant]
     Active Substance: VITAMIN D NOS
     Indication: Osteoporosis
     Route: 065

REACTIONS (1)
  - Photosensitivity reaction [Recovered/Resolved]
